FAERS Safety Report 7203323-6 (Version None)
Quarter: 2010Q4

REPORT INFORMATION
  Report Type: 
  Country: None (occurrence: None)
  Receive Date: 20101230
  Receipt Date: 20101202
  Transmission Date: 20110411
  Serious: No
  Sender: FDA-Public Use
  Company Number: US-BIOGENIDEC-2010BI044556

PATIENT
  Sex: Female

DRUGS (5)
  1. AVONEX [Suspect]
     Indication: MULTIPLE SCLEROSIS
     Route: 030
     Dates: start: 20020101
  2. AVONEX [Suspect]
     Route: 030
     Dates: start: 20010101, end: 20010101
  3. AVONEX [Suspect]
     Route: 030
     Dates: start: 20010101, end: 20010101
  4. AVONEX [Suspect]
     Route: 030
     Dates: start: 20010101, end: 20010101
  5. AVONEX [Suspect]
     Route: 030
     Dates: start: 20010101, end: 20010101

REACTIONS (5)
  - BACK PAIN [None]
  - INFLUENZA LIKE ILLNESS [None]
  - MOBILITY DECREASED [None]
  - MULTIPLE SCLEROSIS RELAPSE [None]
  - MUSCLE DISORDER [None]
